FAERS Safety Report 10210746 (Version 2)
Quarter: 2014Q2

REPORT INFORMATION
  Report Type: Report from Study
  Country: JP (occurrence: JP)
  Receive Date: 20140602
  Receipt Date: 20140613
  Transmission Date: 20141212
  Serious: No
  Sender: FDA-Public Use
  Company Number: PHHY2014JP067169

PATIENT
  Age: 62 Year
  Sex: Female

DRUGS (2)
  1. LEPONEX / CLOZARIL [Suspect]
     Indication: SCHIZOPHRENIA
     Route: 048
     Dates: start: 20120522, end: 20140522
  2. LEPONEX / CLOZARIL [Suspect]
     Dosage: UNK
     Route: 048
     Dates: start: 20140523

REACTIONS (1)
  - Fall [Unknown]
